FAERS Safety Report 4694889-9 (Version None)
Quarter: 2005Q2

REPORT INFORMATION
  Report Type: 
  Country: None (occurrence: None)
  Receive Date: 20050617
  Receipt Date: 20050607
  Transmission Date: 20051028
  Serious: Yes (Other)
  Sender: FDA-Public Use
  Company Number: 2005087412

PATIENT
  Age: 53 Year
  Sex: Male
  Weight: 88.4514 kg

DRUGS (5)
  1. CELEBREX [Suspect]
     Indication: MUSCULOSKELETAL DISORDER
     Dosage: 200 MG (200 MG, 1 IN 1 D), ORAL
     Route: 048
     Dates: start: 20020801
  2. PRILOSEC [Concomitant]
  3. CLARINEX [Concomitant]
  4. FLONASE [Concomitant]
  5. TOPROL (METOPROLOL) [Concomitant]

REACTIONS (3)
  - CEREBRAL ARTERY THROMBOSIS [None]
  - CEREBRAL INFARCTION [None]
  - CEREBROVASCULAR ACCIDENT [None]
